FAERS Safety Report 16729442 (Version 6)
Quarter: 2019Q4

REPORT INFORMATION
  Report Type: Spontaneous
  Country: US (occurrence: US)
  Receive Date: 20190822
  Receipt Date: 20191202
  Transmission Date: 20200122
  Serious: Yes (Other)
  Sender: FDA-Public Use
  Company Number: US-PFIZER INC-2019354814

PATIENT
  Age: 11 Year
  Sex: Female
  Weight: 29 kg

DRUGS (4)
  1. GENOTROPIN [Suspect]
     Active Substance: SOMATROPIN
     Dosage: 1.5CC ROTATE SITES EVERY NIGHT BEFORE BED THIGH OR ARM
     Route: 058
     Dates: start: 20190812
  2. GENOTROPIN [Suspect]
     Active Substance: SOMATROPIN
     Dosage: 1.3CC
     Route: 058
  3. GENOTROPIN [Suspect]
     Active Substance: SOMATROPIN
     Dosage: 1.5CC ROTATE SITES EVERY NIGHT BEFORE BED THIGH OR ARM
     Route: 058
     Dates: start: 20190812
  4. GENOTROPIN [Suspect]
     Active Substance: SOMATROPIN
     Indication: DWARFISM
     Dosage: 1.2CC

REACTIONS (1)
  - Drug ineffective [Not Recovered/Not Resolved]
